FAERS Safety Report 8243604-0 (Version None)
Quarter: 2012Q1

REPORT INFORMATION
  Report Type: 
  Country: None (occurrence: None)
  Receive Date: 20120329
  Receipt Date: 20120319
  Transmission Date: 20120608
  Serious: Yes (Hospitalization, Other)
  Sender: FDA-Public Use
  Company Number: US-BAYER-2011-107135

PATIENT
  Age: 30 Year
  Sex: Female
  Weight: 72.562 kg

DRUGS (6)
  1. YAZ [Suspect]
     Indication: DYSMENORRHOEA
  2. YAZ [Suspect]
     Indication: MENORRHAGIA
  3. CIPROFLOXACIN [Concomitant]
  4. VICODIN [Concomitant]
  5. YAZ [Suspect]
     Indication: CONTRACEPTION
     Dosage: UNK
     Dates: start: 20081030, end: 20090506
  6. YAZ [Suspect]
     Indication: ACNE

REACTIONS (9)
  - HEPATITIS CHOLESTATIC [None]
  - CHOLECYSTITIS ACUTE [None]
  - BILE DUCT STONE [None]
  - VOMITING [None]
  - NAUSEA [None]
  - PANCREATITIS CHRONIC [None]
  - FEAR [None]
  - GALLBLADDER INJURY [None]
  - ABDOMINAL PAIN UPPER [None]
